FAERS Safety Report 10219380 (Version 1)
Quarter: 2014Q2

REPORT INFORMATION
  Report Type: Spontaneous
  Country: US (occurrence: None)
  Receive Date: 20140604
  Receipt Date: 20140604
  Transmission Date: 20141212
  Serious: No
  Sender: FDA-Public Use
  Company Number: None

PATIENT
  Age: 41 Year
  Sex: Female
  Weight: 53.52 kg

DRUGS (1)
  1. NUVARING [Suspect]
     Indication: CONTRACEPTION
     Dosage: VAGINAL?
     Route: 067
     Dates: start: 20140602, end: 20140602

REACTIONS (8)
  - Dyspnoea [None]
  - Dizziness [None]
  - Nausea [None]
  - Heart rate increased [None]
  - Muscle spasms [None]
  - Paraesthesia [None]
  - Pain in extremity [None]
  - Dizziness [None]
